FAERS Safety Report 9854335 (Version 2)
Quarter: 2014Q4

REPORT INFORMATION
  Report Type: Report from Study
  Country: US (occurrence: US)
  Receive Date: 20140130
  Receipt Date: 20141007
  Transmission Date: 20150529
  Serious: Yes (Hospitalization)
  Sender: FDA-Public Use
  Company Number: US-BIOGENIDEC-2014BI008132

PATIENT
  Sex: Female
  Weight: 53 kg

DRUGS (12)
  1. VITAMIN B COMPLEX [Concomitant]
     Active Substance: CYANOCOBALAMIN\DEXPANTHENOL\NIACINAMIDE\PYRIDOXINE HYDROCHLORIDE\RIBOFLAVIN 5^-PHOSPHATE SODIUM\THIAMINE HYDROCHLORIDE\VITAMIN B COMPLEX
  2. COENZYME Q10 [Concomitant]
     Active Substance: UBIDECARENONE
  3. CLARINEX [Concomitant]
     Active Substance: DESLORATADINE
  4. FISH OIL [Concomitant]
     Active Substance: FISH OIL
  5. MODAFINIL. [Concomitant]
     Active Substance: MODAFINIL
  6. POTASSIUM [Concomitant]
     Active Substance: POTASSIUM
  7. CRANBERRY. [Concomitant]
     Active Substance: CRANBERRY
  8. MAGNESIUM [Concomitant]
     Active Substance: MAGNESIUM
  9. TOPROL XL [Concomitant]
     Active Substance: METOPROLOL SUCCINATE
  10. GINKOGIN [Concomitant]
  11. TECFIDERA [Suspect]
     Active Substance: DIMETHYL FUMARATE
     Indication: PRODUCT USED FOR UNKNOWN INDICATION
  12. VITAMIN D3 [Concomitant]
     Active Substance: CHOLECALCIFEROL

REACTIONS (3)
  - Gastric disorder [Recovered/Resolved]
  - Dehydration [Recovered/Resolved]
  - Vomiting [Recovered/Resolved]
